FAERS Safety Report 5567639-1 (Version None)
Quarter: 2007Q4

REPORT INFORMATION
  Report Type: 
  Country: None (occurrence: None)
  Receive Date: 20071205
  Receipt Date: 20071121
  Transmission Date: 20080405
  Serious: Yes (Hospitalization, Other)
  Sender: FDA-Public Use
  Company Number: THYM-11456

PATIENT
  Age: 61 Year
  Sex: Female
  Weight: 60 kg

DRUGS (25)
  1. THYMOGLOBULIN [Suspect]
     Indication: RENAL TRANSPLANT
     Dates: start: 20070515, end: 20070524
  2. THYMOGLOBULIN [Suspect]
  3. PREDNISONE TAB [Concomitant]
  4. TACROLIMUS [Concomitant]
  5. CLONIDINE [Concomitant]
  6. NEPHRO-VITE [Concomitant]
  7. METOPROLOL [Concomitant]
  8. QUININE [Concomitant]
  9. LISINOPRIL [Concomitant]
  10. NORVASC. MFR: PFIZER LABORATORIES [Concomitant]
  11. RENAGEL [Concomitant]
  12. TRAZODONE HCL [Concomitant]
  13. CALCIUM CARBONATE [Concomitant]
  14. SENSIPAR [Concomitant]
  15. FOSAMAX. MFR: MERCK SHARP + DOME [Concomitant]
  16. ASPIRIN [Concomitant]
  17. CALCITRIOL [Concomitant]
  18. CLOTRIMAZOLE [Concomitant]
  19. LASIX [Concomitant]
  20. MYCOPHENOLATE MOFETIL [Concomitant]
  21. OXYCODONE HCL [Concomitant]
  22. RANITIDINE HCL [Concomitant]
  23. BACTEIM. MFR: HOFFMAN-LA ROCHE, INC. [Concomitant]
  24. VALGANCICLOVIR HCL [Concomitant]
  25. DOCUSATE [Concomitant]

REACTIONS (6)
  - COMPLICATIONS OF TRANSPLANTED KIDNEY [None]
  - KIDNEY TRANSPLANT REJECTION [None]
  - NEPHROPATHY TOXIC [None]
  - TACHYCARDIA [None]
  - TRANSPLANT REJECTION [None]
  - URINARY TRACT INFECTION ENTEROCOCCAL [None]
